FAERS Safety Report 13967288 (Version 1)
Quarter: 2017Q3

REPORT INFORMATION
  Report Type: Spontaneous
  Country: US (occurrence: US)
  Receive Date: 20170914
  Receipt Date: 20170914
  Transmission Date: 20171128
  Serious: Yes (Other)
  Sender: FDA-Public Use
  Company Number: None

PATIENT
  Age: 80 Year
  Sex: Male
  Weight: 93.15 kg

DRUGS (21)
  1. OFEV [Suspect]
     Active Substance: NINTEDANIB
     Indication: IDIOPATHIC PULMONARY FIBROSIS
     Dosage: ?          QUANTITY:1 CAPSULE(S);?
     Route: 048
     Dates: start: 20170615, end: 20170913
  2. VASOTEC [Concomitant]
     Active Substance: ENALAPRIL MALEATE
  3. MONTELUKAST SODIUM. [Concomitant]
     Active Substance: MONTELUKAST SODIUM
  4. MULTIVITAMIN [Concomitant]
     Active Substance: VITAMINS
  5. NORVASC [Concomitant]
     Active Substance: AMLODIPINE BESYLATE
  6. TRAMADOL (ULTRAM) [Concomitant]
  7. PROPANOL [Concomitant]
     Active Substance: PROPRANOLOL HYDROCHLORIDE
  8. LEVOTHYROXINE. [Concomitant]
     Active Substance: LEVOTHYROXINE
  9. OXYGEN. [Concomitant]
     Active Substance: OXYGEN
  10. FISH OIL [Concomitant]
     Active Substance: FISH OIL
  11. FENOFIBRATE. [Concomitant]
     Active Substance: FENOFIBRATE
  12. VITAMIN B COMPLEX [Concomitant]
     Active Substance: CYANOCOBALAMIN\DEXPANTHENOL\NIACINAMIDE\PYRIDOXINE HYDROCHLORIDE\RIBOFLAVIN 5^-PHOSPHATE SODIUM\THIAMINE HYDROCHLORIDE\VITAMIN B COMPLEX
  13. MELATONIN [Concomitant]
     Active Substance: MELATONIN
  14. METHYCLOTHIAZIDE (ENDURON) [Concomitant]
  15. MAGNESIUM [Concomitant]
     Active Substance: MAGNESIUM
  16. NAC (N-ACETYL CYSTEINE) [Concomitant]
  17. ACID REFLUX PRILOSEC [Concomitant]
  18. BABY ASPIRIN [Concomitant]
     Active Substance: ASPIRIN
  19. RAPIFLO [Concomitant]
  20. VALERIAN ROOT [Concomitant]
     Active Substance: VALERIAN
  21. GLYBURIDE/METFORMIN (GLUCOVANCE) [Concomitant]

REACTIONS (4)
  - Vomiting [None]
  - Blood glucose increased [None]
  - Nausea [None]
  - Glycosylated haemoglobin increased [None]

NARRATIVE: CASE EVENT DATE: 20170829
